FAERS Safety Report 4622678-X (Version None)
Quarter: 2005Q1

REPORT INFORMATION
  Report Type: 
  Country: None (occurrence: None)
  Receive Date: 20050328
  Receipt Date: 20050328
  Transmission Date: 20050727
  Serious: Yes (Other)
  Sender: FDA-Public Use
  Company Number: None

PATIENT
  Age: 15 Year
  Sex: Female
  Weight: 48.9885 kg

DRUGS (4)
  1. ABILIFY [Suspect]
     Dosage: 5 MG PO Q DAY
     Route: 048
     Dates: start: 20050111, end: 20050119
  2. ABILIFY [Suspect]
     Dosage: 2.5 MG PO QD PRN
     Route: 048
     Dates: start: 20050118, end: 20050119
  3. FLUOXETINE [Concomitant]
  4. DETROL LA [Concomitant]

REACTIONS (6)
  - BODY TEMPERATURE INCREASED [None]
  - COGWHEEL RIGIDITY [None]
  - CONFUSIONAL STATE [None]
  - GAIT DISTURBANCE [None]
  - HEART RATE INCREASED [None]
  - TREMOR [None]
